FAERS Safety Report 9999997 (Version 3)
Quarter: 2015Q3

REPORT INFORMATION
  Report Type: Spontaneous
  Country: US (occurrence: US)
  Receive Date: 20140312
  Receipt Date: 20150812
  Transmission Date: 20151125
  Serious: No
  Sender: FDA-Public Use
  Company Number: US-GILEAD-2012-0058165

PATIENT
  Age: 67 Year
  Sex: Female

DRUGS (2)
  1. LETAIRIS [Suspect]
     Active Substance: AMBRISENTAN
     Indication: COR PULMONALE CHRONIC
     Dosage: 10 MG, QD
     Dates: start: 20110318
  2. VENTAVIS [Suspect]
     Active Substance: ILOPROST

REACTIONS (4)
  - Headache [Unknown]
  - Malaise [Unknown]
  - Cough [Unknown]
  - Dizziness [Unknown]
